FAERS Safety Report 25527629 (Version 1)
Quarter: 2025Q3

REPORT INFORMATION
  Report Type: Spontaneous
  Country: CN (occurrence: CN)
  Receive Date: 20250708
  Receipt Date: 20250708
  Transmission Date: 20251021
  Serious: Yes (Hospitalization)
  Sender: ENDO
  Company Number: CN-ENDO USA, INC.-2025-001491

PATIENT
  Age: 17 Year
  Sex: Male

DRUGS (8)
  1. ETOMIDATE [Suspect]
     Active Substance: ETOMIDATE
     Indication: Substance use
     Dates: start: 2024, end: 2024
  2. COCAINE [Concomitant]
     Active Substance: COCAINE
     Indication: Product used for unknown indication
     Route: 065
  3. KETAMINE [Concomitant]
     Active Substance: KETAMINE
     Indication: Product used for unknown indication
     Route: 065
  4. FAMOTIDINE [Concomitant]
     Active Substance: FAMOTIDINE
     Indication: Product used for unknown indication
     Route: 065
  5. MELOXICAM [Concomitant]
     Active Substance: MELOXICAM
     Indication: Product used for unknown indication
     Route: 065
  6. OFLOXACIN/LEVOFLOXACIN [Concomitant]
     Indication: Product used for unknown indication
     Route: 065
  7. OMEPRAZOLE/ESOMEPRAZOLE [Concomitant]
     Indication: Product used for unknown indication
     Route: 065
  8. ACETAMINOPHEN [Concomitant]
     Active Substance: ACETAMINOPHEN
     Indication: Product used for unknown indication
     Route: 065

REACTIONS (4)
  - Adrenal insufficiency [Not Recovered/Not Resolved]
  - Drug abuse [Recovered/Resolved]
  - Hypokalaemia [Unknown]
  - Hypertension [Unknown]

NARRATIVE: CASE EVENT DATE: 20240101
